FAERS Safety Report 8303750-X (Version None)
Quarter: 2012Q1

REPORT INFORMATION
  Report Type: 
  Country: None (occurrence: None)
  Receive Date: 20120326
  Receipt Date: 20111109
  Transmission Date: 20120608
  Serious: Yes (Hospitalization)
  Sender: FDA-Public Use
  Company Number: PHEH2011US08280

PATIENT
  Age: 45 Year
  Sex: Male

DRUGS (10)
  1. LOPROX (CICLOPIROX OLAMINE) [Concomitant]
  2. NOVOLOG [Concomitant]
  3. NITROGLYCERIN [Concomitant]
  4. PROMETHAZINE [Suspect]
     Indication: NAUSEA
     Dosage: 25 MG, Q5H
  5. EPLERENONE [Concomitant]
  6. CATAPRES-TTS-3 [Concomitant]
  7. TASIGNA [Suspect]
     Dosage: 150 MG, QID, ORAL
     Route: 048
  8. PERCOCET [Concomitant]
  9. ATIVAN [Concomitant]
  10. RANITIDINE HYDROCHLORIDE [Concomitant]

REACTIONS (13)
  - BLOOD GLUCOSE INCREASED [None]
  - DIZZINESS [None]
  - COUGH [None]
  - HEADACHE [None]
  - RHINORRHOEA [None]
  - CHEST DISCOMFORT [None]
  - PRURITUS [None]
  - NAUSEA [None]
  - CHEST PAIN [None]
  - GASTRIC DISORDER [None]
  - HERPES ZOSTER [None]
  - HYPOPNOEA [None]
  - PALPITATIONS [None]
